FAERS Safety Report 25035459 (Version 1)
Quarter: 2025Q1

REPORT INFORMATION
  Report Type: Spontaneous
  Country: CZ (occurrence: CZ)
  Receive Date: 20250304
  Receipt Date: 20250304
  Transmission Date: 20250409
  Serious: Yes (Other)
  Sender: BAUSCH AND LOMB
  Company Number: CZ-BAUSCH-BL-2025-002672

PATIENT
  Age: 7 Decade
  Sex: Female

DRUGS (5)
  1. NITROGLYCERIN [Suspect]
     Active Substance: NITROGLYCERIN
     Indication: Product used for unknown indication
     Route: 065
  2. NOREPINEPHRINE [Concomitant]
     Active Substance: NOREPINEPHRINE
     Indication: Haemodynamic instability
  3. HEPARIN [Concomitant]
     Active Substance: HEPARIN SODIUM
     Indication: Lung assist device therapy
  4. METOPROLOL [Concomitant]
     Active Substance: METOPROLOL
     Indication: Left ventricular dysfunction
  5. ARGIPRESSIN [Concomitant]
     Active Substance: ARGIPRESSIN
     Indication: Cardiogenic shock

REACTIONS (1)
  - Left ventricle outflow tract obstruction [Recovered/Resolved]
